FAERS Safety Report 23033001 (Version 1)
Quarter: 2023Q4

REPORT INFORMATION
  Report Type: Spontaneous
  Country: US (occurrence: US)
  Receive Date: 20231005
  Receipt Date: 20231005
  Transmission Date: 20240110
  Serious: No
  Sender: FDA-Public Use
  Company Number: US-ABBVIE-5435707

PATIENT
  Age: 48 Year
  Sex: Female
  Weight: 56 kg

DRUGS (1)
  1. RINVOQ [Suspect]
     Active Substance: UPADACITINIB
     Indication: Dermatitis atopic
     Dosage: DURATION TEXT: AT LEAST 4 MONTHS?FORM STRENGTH: 15 MG
     Route: 048
     Dates: end: 2023

REACTIONS (1)
  - Low density lipoprotein increased [Not Recovered/Not Resolved]

NARRATIVE: CASE EVENT DATE: 20230901
